FAERS Safety Report 5300771-6 (Version None)
Quarter: 2007Q2

REPORT INFORMATION
  Report Type: 
  Country: None (occurrence: None)
  Receive Date: 20070418
  Receipt Date: 20070416
  Transmission Date: 20071010
  Serious: Yes (Death, Other)
  Sender: FDA-Public Use
  Company Number: MY-BRISTOL-MYERS SQUIBB COMPANY-13749452

PATIENT
  Age: 40 Year
  Sex: Male

DRUGS (8)
  1. METHOTREXATE [Suspect]
     Indication: HODGKIN'S DISEASE
     Route: 037
  2. METHOTREXATE [Suspect]
     Route: 042
  3. METHOTREXATE [Suspect]
     Route: 042
  4. DOXORUBICIN HCL [Suspect]
     Indication: HODGKIN'S DISEASE
  5. BLEOMYCIN [Suspect]
     Indication: HODGKIN'S DISEASE
  6. CYCLOPHOSPHAMIDE [Suspect]
     Indication: HODGKIN'S DISEASE
  7. VINCRISTINE SULFATE [Suspect]
     Indication: HODGKIN'S DISEASE
  8. ARA-C [Suspect]
     Indication: HODGKIN'S DISEASE
     Route: 037

REACTIONS (4)
  - DEATH [None]
  - MYELOPATHY [None]
  - RESPIRATORY FAILURE [None]
  - SOMNOLENCE [None]
